FAERS Safety Report 7107546-6 (Version None)
Quarter: 2010Q4

REPORT INFORMATION
  Report Type: 
  Country: None (occurrence: None)
  Receive Date: 20101117
  Receipt Date: 20101111
  Transmission Date: 20110411
  Serious: Yes (Other)
  Sender: FDA-Public Use
  Company Number: JP-EISAI INC.-E2090-01371-SPO-JP

PATIENT
  Sex: Female

DRUGS (2)
  1. EXCEGRAN [Suspect]
     Indication: CEREBROVASCULAR ARTERIOVENOUS MALFORMATION
     Route: 048
     Dates: start: 20090101, end: 20090507
  2. TAGAMET [Concomitant]
     Route: 048
     Dates: start: 20090101, end: 20090507

REACTIONS (2)
  - DRUG RASH WITH EOSINOPHILIA AND SYSTEMIC SYMPTOMS [None]
  - LIVER DISORDER [None]
